FAERS Safety Report 18559770 (Version 4)
Quarter: 2022Q1

REPORT INFORMATION
  Report Type: Report from Study
  Country: US (occurrence: US)
  Receive Date: 20201130
  Receipt Date: 20220304
  Transmission Date: 20220423
  Serious: Yes (Hospitalization, Other)
  Sender: FDA-Public Use
  Company Number: US-TAKEDA-2020TUS052719

PATIENT
  Sex: Female
  Weight: 75 kg

DRUGS (34)
  1. HUMAN IMMUNOGLOBULIN G [Suspect]
     Active Substance: HUMAN IMMUNOGLOBULIN G
     Indication: Immunodeficiency common variable
     Dosage: 10 GRAM, 1/WEEK
     Route: 058
     Dates: start: 20190406
  2. OXYGEN [Concomitant]
     Active Substance: OXYGEN
  3. ACETAMINOPHEN [Concomitant]
     Active Substance: ACETAMINOPHEN
  4. DIPHENHYDRAMINE [Concomitant]
     Active Substance: DIPHENHYDRAMINE
  5. LIDOCAINE HYDROCHLORIDE [Concomitant]
     Active Substance: LIDOCAINE HYDROCHLORIDE
  6. PREDNISONE [Concomitant]
     Active Substance: PREDNISONE
  7. EPINEPHRINE [Concomitant]
     Active Substance: EPINEPHRINE
  8. VICTOZA [Concomitant]
     Active Substance: LIRAGLUTIDE
  9. OXYCODONE AND ACETAMINOPHEN [Concomitant]
     Active Substance: ACETAMINOPHEN\OXYCODONE HYDROCHLORIDE
  10. ELIQUIS [Concomitant]
     Active Substance: APIXABAN
  11. LASIX [Concomitant]
     Active Substance: FUROSEMIDE
  12. FOSAMAX [Concomitant]
     Active Substance: ALENDRONATE SODIUM
  13. SINGULAIR [Concomitant]
     Active Substance: MONTELUKAST SODIUM
  14. MIRALAX [Concomitant]
     Active Substance: POLYETHYLENE GLYCOL 3350
  15. OMEPRAZOLE [Concomitant]
     Active Substance: OMEPRAZOLE
  16. LANTUS [Concomitant]
     Active Substance: INSULIN GLARGINE
  17. PRAVASTATIN SODIUM [Concomitant]
     Active Substance: PRAVASTATIN SODIUM
  18. NOVOLOG [Concomitant]
     Active Substance: INSULIN ASPART
  19. VENTOLIN [Concomitant]
     Active Substance: ALBUTEROL SULFATE
  20. SYMBICORT [Concomitant]
     Active Substance: BUDESONIDE\FORMOTEROL FUMARATE DIHYDRATE
  21. ALBUTEROL SULFATE [Concomitant]
     Active Substance: ALBUTEROL SULFATE
  22. TRETINOIN [Concomitant]
     Active Substance: TRETINOIN
  23. ALLOPURINOL [Concomitant]
     Active Substance: ALLOPURINOL
  24. SUDOGEST [Concomitant]
     Active Substance: PSEUDOEPHEDRINE HYDROCHLORIDE
  25. POTASSIUM [Concomitant]
     Active Substance: POTASSIUM
  26. COENZYME Q10 [Concomitant]
     Active Substance: DIETARY SUPPLEMENT\UBIDECARENONE
  27. FLORAJEN3 [Concomitant]
  28. NASACORT [Concomitant]
     Active Substance: TRIAMCINOLONE ACETONIDE
  29. VITAMIN D3 [Concomitant]
     Active Substance: CHOLECALCIFEROL
  30. ALPHA LIPOIC ACID [Concomitant]
     Active Substance: .ALPHA.-LIPOIC ACID
  31. GLUTATHIONE [Concomitant]
     Active Substance: GLUTATHIONE
  32. GARLIC [Concomitant]
     Active Substance: GARLIC
  33. PLAVIX [Concomitant]
     Active Substance: CLOPIDOGREL BISULFATE
  34. MUCINEX [Concomitant]
     Active Substance: GUAIFENESIN

REACTIONS (9)
  - Colitis [Unknown]
  - Sepsis [Unknown]
  - Cardiac infection [Unknown]
  - Atrial fibrillation [Unknown]
  - Cardiac failure congestive [Unknown]
  - Pleural effusion [Unknown]
  - Illness [Unknown]
  - Decreased appetite [Unknown]
  - Nausea [Unknown]
